FAERS Safety Report 10679191 (Version 1)
Quarter: 2014Q4

REPORT INFORMATION
  Report Type: Spontaneous
  Country: US (occurrence: None)
  Receive Date: 20141224
  Receipt Date: 20141224
  Transmission Date: 20150529
  Serious: Yes (Other)
  Sender: FDA-Public Use
  Company Number: None

PATIENT
  Age: 37 Year
  Sex: Female
  Weight: 118.39 kg

DRUGS (1)
  1. GENERIC PROZAC [Suspect]
     Active Substance: FLUOXETINE HYDROCHLORIDE
     Indication: MAJOR DEPRESSION
     Dosage: 40 MG Q PM PO
     Route: 048
     Dates: start: 201110, end: 201111

REACTIONS (2)
  - Product substitution issue [None]
  - General physical health deterioration [None]

NARRATIVE: CASE EVENT DATE: 201111
